FAERS Safety Report 9410258 (Version 2)
Quarter: 2014Q1

REPORT INFORMATION
  Report Type: Spontaneous
  Country: FR (occurrence: FR)
  Receive Date: 20130719
  Receipt Date: 20140220
  Transmission Date: 20141002
  Serious: Yes (Other)
  Sender: FDA-Public Use
  Company Number: FR-ASTRAZENECA-2013SE52492

PATIENT
  Age: 62 Year
  Sex: Female

DRUGS (3)
  1. XEROQUEL [Suspect]
     Indication: SCHIZOPHRENIA
     Route: 048
  2. UNSPECIFIED NEUROLEPTIC [Concomitant]
     Dosage: LONG-TERM TREATMENT
  3. UNSPECIFIED THYMOREGULATOR [Concomitant]
     Dosage: LONG-TERM TREATMENT

REACTIONS (1)
  - Cholangitis [Unknown]
